FAERS Safety Report 8535738-8 (Version None)
Quarter: 2012Q3

REPORT INFORMATION
  Report Type: 
  Country: None (occurrence: None)
  Receive Date: 20120725
  Receipt Date: 20120716
  Transmission Date: 20120928
  Serious: No
  Sender: FDA-Public Use
  Company Number: US-ROXANE LABORATORIES, INC.-2012-RO-01551RO

PATIENT
  Sex: Female

DRUGS (2)
  1. LEVORA 0.15/30-21 [Suspect]
  2. DEXAMETHASONE [Suspect]

REACTIONS (1)
  - RASH [None]
